FAERS Safety Report 5264043-0 (Version None)
Quarter: 2007Q1

REPORT INFORMATION
  Report Type: 
  Country: None (occurrence: None)
  Receive Date: 20070313
  Receipt Date: 20070221
  Transmission Date: 20070707
  Serious: Yes (Hospitalization, Other)
  Sender: FDA-Public Use
  Company Number: US-PFIZER INC-2006051791

PATIENT
  Sex: Male
  Weight: 76.2 kg

DRUGS (1)
  1. BEXTRA [Suspect]
     Indication: SCIATICA
     Dates: start: 20040501, end: 20041001

REACTIONS (5)
  - CEREBROVASCULAR ACCIDENT [None]
  - FALL [None]
  - GAIT DISTURBANCE [None]
  - PAIN IN EXTREMITY [None]
  - SYNCOPE [None]
